FAERS Safety Report 5409998-6 (Version None)
Quarter: 2007Q3

REPORT INFORMATION
  Report Type: 
  Country: None (occurrence: None)
  Receive Date: 20070809
  Receipt Date: 20070731
  Transmission Date: 20080115
  Serious: Yes (Other)
  Sender: FDA-Public Use
  Company Number: JP-PFIZER INC-2007064719

PATIENT
  Age: 78 Year
  Sex: Male

DRUGS (4)
  1. CABERGOLINE [Suspect]
     Indication: PARKINSON'S DISEASE
     Dosage: DAILY DOSE:2MG
     Route: 048
  2. MENESIT [Concomitant]
  3. EPADEL [Concomitant]
  4. NAUZELIN [Concomitant]

REACTIONS (2)
  - HEART VALVE CALCIFICATION [None]
  - SPUTUM RETENTION [None]
